FAERS Safety Report 20062473 (Version 2)
Quarter: 2022Q1

REPORT INFORMATION
  Report Type: Spontaneous
  Country: US (occurrence: US)
  Receive Date: 20211112
  Receipt Date: 20220322
  Transmission Date: 20220423
  Serious: Yes (Other)
  Sender: FDA-Public Use
  Company Number: US-AMGEN-USASP2021172766

PATIENT
  Age: 65 Year
  Sex: Female

DRUGS (4)
  1. PROLIA [Suspect]
     Active Substance: DENOSUMAB
     Indication: Osteoporosis
     Dosage: UNK
     Route: 065
     Dates: start: 201503, end: 201503
  2. PROLIA [Suspect]
     Active Substance: DENOSUMAB
  3. EVENITY [Suspect]
     Active Substance: ROMOSOZUMAB-AQQG
     Indication: Osteoporosis
     Dosage: UNK
     Route: 065
     Dates: start: 20201012
  4. COVID-19 VACCINE [Concomitant]

REACTIONS (9)
  - Spinal compression fracture [Unknown]
  - Pelvic fracture [Unknown]
  - Ankle fracture [Unknown]
  - Lumbar vertebral fracture [Unknown]
  - Lower limb fracture [Unknown]
  - Foot fracture [Unknown]
  - Stress fracture [Recovered/Resolved]
  - Hypophosphatasia [Unknown]
  - Joint injury [Recovered/Resolved]

NARRATIVE: CASE EVENT DATE: 20150501
